FAERS Safety Report 14769535 (Version 1)
Quarter: 2018Q2

REPORT INFORMATION
  Report Type: Spontaneous
  Country: US (occurrence: US)
  Receive Date: 20180411
  Receipt Date: 20180411
  Transmission Date: 20180711
  Serious: Yes (Disabling)
  Sender: FDA-Public Use
  Company Number: None

PATIENT
  Age: 74 Year
  Sex: Male
  Weight: 76.5 kg

DRUGS (11)
  1. VITAMIN C [Concomitant]
     Active Substance: ASCORBIC ACID
  2. BENADRYL [Concomitant]
     Active Substance: DIPHENHYDRAMINE HYDROCHLORIDE
  3. NITROFURANTOIN MONO [Suspect]
     Active Substance: NITROFURANTOIN
     Indication: PROSTATE INFECTION
     Dosage: ?          QUANTITY:28 CAPSULE(S);?
     Route: 048
     Dates: start: 20170627, end: 20170706
  4. GABAPENTIN. [Concomitant]
     Active Substance: GABAPENTIN
  5. LEVOTHYROXIN [Concomitant]
     Active Substance: LEVOTHYROXINE
  6. VITAMIN B12 [Concomitant]
     Active Substance: CYANOCOBALAMIN
  7. ALPHA LEPOIC ACID [Concomitant]
  8. B6 [Concomitant]
     Active Substance: PYRIDOXINE HYDROCHLORIDE
  9. NITROFURANTOIN MONO [Suspect]
     Active Substance: NITROFURANTOIN
     Indication: CYSTITIS
     Dosage: ?          QUANTITY:28 CAPSULE(S);?
     Route: 048
     Dates: start: 20170627, end: 20170706
  10. NORTRIPTYLIN [Concomitant]
     Active Substance: NORTRIPTYLINE
  11. MUCINEX SINUS-MAX [Concomitant]

REACTIONS (11)
  - Muscular weakness [None]
  - Chest pain [None]
  - Diaphragmalgia [None]
  - Condition aggravated [None]
  - Abdominal pain [None]
  - Hypoaesthesia [None]
  - Neuropathy peripheral [None]
  - Gait disturbance [None]
  - Groin pain [None]
  - Pain in extremity [None]
  - Back pain [None]

NARRATIVE: CASE EVENT DATE: 20170706
